FAERS Safety Report 18808770 (Version 2)
Quarter: 2021Q2

REPORT INFORMATION
  Report Type: Spontaneous
  Country: US (occurrence: US)
  Receive Date: 20210129
  Receipt Date: 20210514
  Transmission Date: 20210717
  Serious: Yes (Other)
  Sender: FDA-Public Use
  Company Number: US-GLAXOSMITHKLINE-US2021GSK022131

PATIENT
  Sex: Male

DRUGS (6)
  1. ZANTAC [Suspect]
     Active Substance: RANITIDINE HYDROCHLORIDE
     Dosage: UNK
  2. RANITIDINE. [Suspect]
     Active Substance: RANITIDINE
     Dosage: 150 MG, WE
     Route: 065
     Dates: start: 201503, end: 201703
  3. RANITIDINE. [Suspect]
     Active Substance: RANITIDINE
     Indication: TRANSPLANT
     Dosage: 75 MG PRESCRIPTION
     Route: 065
     Dates: start: 201503, end: 201703
  4. ZANTAC [Suspect]
     Active Substance: RANITIDINE HYDROCHLORIDE
     Indication: TRANSPLANT
     Dosage: UNK UNK, QD
     Route: 065
  5. RANITIDINE. [Suspect]
     Active Substance: RANITIDINE
     Indication: TRANSPLANT
     Dosage: 75 MG PRESCRIPTION
     Route: 065
     Dates: start: 201503, end: 201703
  6. RANITIDINE. [Suspect]
     Active Substance: RANITIDINE
     Dosage: 150 MG, WE
     Route: 065
     Dates: start: 201503, end: 201703

REACTIONS (1)
  - Lung neoplasm malignant [Unknown]
